FAERS Safety Report 6099454-7 (Version None)
Quarter: 2009Q1

REPORT INFORMATION
  Report Type: 
  Country: None (occurrence: None)
  Receive Date: 20090303
  Receipt Date: 20090220
  Transmission Date: 20090719
  Serious: Yes (Hospitalization)
  Sender: FDA-Public Use
  Company Number: CH-BAYER-200914786GPV

PATIENT
  Age: 18 Year
  Sex: Female

DRUGS (2)
  1. YASMIN [Suspect]
     Indication: CONTRACEPTION
     Route: 048
     Dates: start: 20080701
  2. AZITHROMYCIN [Suspect]
     Indication: ACUTE SINUSITIS
     Route: 048
     Dates: start: 20080812, end: 20080815

REACTIONS (1)
  - PANCREATITIS [None]
